FAERS Safety Report 22540966 (Version 2)
Quarter: 2023Q2

REPORT INFORMATION
  Report Type: Spontaneous
  Country: US (occurrence: US)
  Receive Date: 20230609
  Receipt Date: 20230627
  Transmission Date: 20230721
  Serious: Yes (Other)
  Sender: FDA-Public Use
  Company Number: US-PFIZER INC-202300211940

PATIENT
  Age: 87 Year
  Sex: Female

DRUGS (2)
  1. AZITHROMYCIN [Suspect]
     Active Substance: AZITHROMYCIN
     Indication: COVID-19
     Dosage: UNK, 2X/DAY
     Dates: start: 20230513, end: 20230516
  2. IVERMECTIN [Concomitant]
     Active Substance: IVERMECTIN
     Dosage: 12 MG, 2X/DAY
     Dates: start: 20230510, end: 20230518

REACTIONS (5)
  - Macular degeneration [Recovered/Resolved]
  - Condition aggravated [Recovered/Resolved]
  - Visual impairment [Recovered/Resolved]
  - Heart rate increased [Recovered/Resolved]
  - Vision blurred [Recovered/Resolved]
